FAERS Safety Report 14424939 (Version 3)
Quarter: 2019Q4

REPORT INFORMATION
  Report Type: Spontaneous
  Country: GB (occurrence: GB)
  Receive Date: 20180123
  Receipt Date: 20191119
  Transmission Date: 20200122
  Serious: Yes (Hospitalization)
  Sender: FDA-Public Use
  Company Number: GB-TEVA-2018-GB-848713

PATIENT
  Age: 16 Year
  Sex: Male
  Weight: 74.9 kg

DRUGS (5)
  1. ZOLEDRONIC ACID [Suspect]
     Active Substance: ZOLEDRONIC ACID
     Indication: SPINAL FRACTURE
     Route: 042
     Dates: start: 20171004, end: 20171007
  2. MOVICOL [Concomitant]
     Active Substance: POLYETHYLENE GLYCOL 3350\POTASSIUM CHLORIDE\SODIUM BICARBONATE\SODIUM CHLORIDE
  3. COLECALCIFEROL [Concomitant]
     Active Substance: CHOLECALCIFEROL
  4. DEFLAZACORT [Concomitant]
     Active Substance: DEFLAZACORT
  5. LISINOPRIL. [Concomitant]
     Active Substance: LISINOPRIL

REACTIONS (7)
  - Vomiting [Recovered/Resolved]
  - Tachycardia [Recovered/Resolved]
  - Nausea [Recovered/Resolved]
  - Malaise [Recovered/Resolved]
  - Systemic inflammatory response syndrome [Recovered/Resolved]
  - Tachypnoea [Recovered/Resolved]
  - Pyrexia [Recovered/Resolved]

NARRATIVE: CASE EVENT DATE: 20171004
